FAERS Safety Report 23254687 (Version 1)
Quarter: 2023Q4

REPORT INFORMATION
  Report Type: Spontaneous
  Country: ES (occurrence: ES)
  Receive Date: 20231203
  Receipt Date: 20231203
  Transmission Date: 20240109
  Serious: Yes (Other)
  Sender: FDA-Public Use
  Company Number: ES-MLMSERVICE-20231116-4671868-1

PATIENT
  Age: 6 Decade
  Sex: Male

DRUGS (2)
  1. RISPERIDONE [Suspect]
     Active Substance: RISPERIDONE
     Indication: Cotard^s syndrome
     Dosage: 4 MILLIGRAM, ONCE A DAY
     Route: 065
  2. CLOMIPRAMINE [Concomitant]
     Active Substance: CLOMIPRAMINE
     Indication: Cotard^s syndrome
     Dosage: 225 MILLIGRAM, ONCE A DAY
     Route: 065

REACTIONS (3)
  - Grimacing [Unknown]
  - Parkinsonism [Unknown]
  - Tardive dyskinesia [Unknown]
